FAERS Safety Report 25892862 (Version 1)
Quarter: 2025Q4

REPORT INFORMATION
  Report Type: Spontaneous
  Country: EU (occurrence: EU)
  Receive Date: 20251007
  Receipt Date: 20251007
  Transmission Date: 20260118
  Serious: Yes (Other)
  Sender: JOHNSON AND JOHNSON
  Company Number: EU-AMGEN-SWESP2025177254

PATIENT
  Sex: Male

DRUGS (5)
  1. TOLODODEKIN ALFA [Suspect]
     Active Substance: TOLODODEKIN ALFA
     Indication: Product used for unknown indication
     Dosage: UNK
     Route: 065
  2. KYPROLIS [Suspect]
     Active Substance: CARFILZOMIB
     Indication: Product used for unknown indication
     Dosage: 39 MILLIGRAM
     Route: 065
  3. KYPROLIS [Suspect]
     Active Substance: CARFILZOMIB
     Dosage: 70 MILLIGRAM, QWK (FOR 3 OUT OF 4 WEEKS)
     Route: 065
  4. LENALIDOMIDE [Suspect]
     Active Substance: LENALIDOMIDE
     Indication: Product used for unknown indication
     Dosage: DOSE UNKNOWN
     Route: 065
  5. DEXAMETHASONE [Suspect]
     Active Substance: DEXAMETHASONE
     Indication: Product used for unknown indication
     Dosage: DOSE UNKNOWN
     Route: 065

REACTIONS (2)
  - Cardiac failure [Unknown]
  - Off label use [Unknown]
